FAERS Safety Report 5540881-1 (Version None)
Quarter: 2007Q4

REPORT INFORMATION
  Report Type: 
  Country: None (occurrence: None)
  Receive Date: 20071129
  Receipt Date: 20070712
  Transmission Date: 20080405
  Serious: Yes (Hospitalization, Other)
  Sender: FDA-Public Use
  Company Number: US200707003042

PATIENT
  Age: 47 Year
  Sex: Male

DRUGS (5)
  1. ZYPREXA [Suspect]
     Indication: BORDERLINE PERSONALITY DISORDER
     Dates: start: 20040101
  2. FLUOXETINE [Concomitant]
  3. BUSPAR [Concomitant]
  4. CRESTOR [Concomitant]
  5. LISINOPRIL [Concomitant]

REACTIONS (3)
  - BLOOD GLUCOSE INCREASED [None]
  - KETOACIDOSIS [None]
  - UNRESPONSIVE TO STIMULI [None]
